FAERS Safety Report 10200002 (Version 1)
Quarter: 2014Q2

REPORT INFORMATION
  Report Type: Spontaneous
  Country: CH (occurrence: CH)
  Receive Date: 20140527
  Receipt Date: 20140527
  Transmission Date: 20141212
  Serious: Yes (Hospitalization, Other)
  Sender: FDA-Public Use
  Company Number: PHHY2014CH063731

PATIENT
  Age: 40 Year
  Sex: Female

DRUGS (1)
  1. MYCOPHENOLATE MOFETIL [Suspect]
     Dosage: 25000 MG (448.0 MG/KG)
     Route: 048

REACTIONS (5)
  - Suicide attempt [Unknown]
  - Leukopenia [Unknown]
  - Decreased appetite [Unknown]
  - Headache [Unknown]
  - Intentional overdose [Unknown]
